FAERS Safety Report 12644021 (Version 1)
Quarter: 2016Q3

REPORT INFORMATION
  Report Type: Spontaneous
  Country: US (occurrence: US)
  Receive Date: 20160811
  Receipt Date: 20160811
  Transmission Date: 20161109
  Serious: No
  Sender: FDA-Public Use
  Company Number: US-BAYER-2016-155014

PATIENT
  Age: 69 Year
  Sex: Female
  Weight: 57.14 kg

DRUGS (2)
  1. ST. JOSEPH ASPIRIN [Concomitant]
     Dosage: 2 UNK, UNK
  2. ALEVE [Suspect]
     Active Substance: NAPROXEN SODIUM
     Indication: MUSCLE SPASMS
     Dosage: UNK, PRN
     Route: 048
     Dates: start: 201605

REACTIONS (2)
  - Product use issue [None]
  - Drug ineffective [None]
